FAERS Safety Report 9757182 (Version 2)
Quarter: 2013Q4

REPORT INFORMATION
  Report Type: Spontaneous
  Country: DE (occurrence: DE)
  Receive Date: 20131213
  Receipt Date: 20131213
  Transmission Date: 20140711
  Serious: Yes (Other)
  Sender: FDA-Public Use
  Company Number: DE-GILEAD-2013-0085633

PATIENT
  Sex: Male
  Weight: 72 kg

DRUGS (1)
  1. EVIPLERA [Suspect]
     Indication: HIV INFECTION
     Dosage: UNK
     Route: 048
     Dates: start: 20130106

REACTIONS (3)
  - Lyme disease [Recovering/Resolving]
  - Arthralgia [None]
  - Myalgia [None]
